FAERS Safety Report 7958584-2 (Version None)
Quarter: 2011Q4

REPORT INFORMATION
  Report Type: 
  Country: None (occurrence: None)
  Receive Date: 20111206
  Receipt Date: 20111130
  Transmission Date: 20120403
  Serious: No
  Sender: FDA-Public Use
  Company Number: US-BIOGENIDEC-2011BI045412

PATIENT
  Age: 56 Year
  Sex: Male

DRUGS (3)
  1. COUMADIN [Concomitant]
     Indication: THROMBOSIS
     Dates: start: 20110801
  2. TYSABRI [Suspect]
     Indication: MULTIPLE SCLEROSIS
     Route: 042
     Dates: start: 20070701, end: 20090901
  3. TYSABRI [Suspect]
     Route: 042
     Dates: start: 20110801

REACTIONS (1)
  - ALOPECIA [None]
